FAERS Safety Report 21570882 (Version 1)
Quarter: 2022Q4

REPORT INFORMATION
  Report Type: Report from Study
  Country: BR (occurrence: BR)
  Receive Date: 20221109
  Receipt Date: 20221109
  Transmission Date: 20230113
  Serious: Yes (Other)
  Sender: FDA-Public Use
  Company Number: BR-JNJFOC-20221102783

PATIENT
  Age: 35 Year
  Sex: Female

DRUGS (2)
  1. INFLIXIMAB [Suspect]
     Active Substance: INFLIXIMAB
     Indication: Crohn^s disease
     Route: 041
     Dates: start: 2021
  2. AZATHIOPRINE [Concomitant]
     Active Substance: AZATHIOPRINE

REACTIONS (3)
  - Hypersensitivity pneumonitis [Recovering/Resolving]
  - Breast cancer [Unknown]
  - Crohn^s disease [Not Recovered/Not Resolved]
